FAERS Safety Report 21786675 (Version 17)
Quarter: 2023Q2

REPORT INFORMATION
  Report Type: Report from Study
  Country: MX (occurrence: MX)
  Receive Date: 20221228
  Receipt Date: 20230511
  Transmission Date: 20230721
  Serious: Yes (Hospitalization, Other)
  Sender: FDA-Public Use
  Company Number: MX-TAKEDA-2021TUS034634

PATIENT
  Age: 5 Year
  Sex: Male
  Weight: 23 kg

DRUGS (1)
  1. IDURSULFASE [Suspect]
     Active Substance: IDURSULFASE
     Indication: Mucopolysaccharidosis II
     Dosage: 2 DOSAGE FORM, 1/WEEK
     Route: 042
     Dates: start: 20190819, end: 20230424

REACTIONS (12)
  - Hyperthermia [Recovered/Resolved]
  - General physical health deterioration [Recovered/Resolved]
  - Burning sensation [Recovered/Resolved]
  - Tachycardia [Recovered/Resolved]
  - Tremor [Recovered/Resolved]
  - Abdominal distension [Not Recovered/Not Resolved]
  - Influenza [Recovering/Resolving]
  - Poor venous access [Recovering/Resolving]
  - Device malfunction [Recovering/Resolving]
  - Product availability issue [Not Recovered/Not Resolved]
  - Inappropriate schedule of product administration [Recovering/Resolving]
  - Product dose omission issue [Recovering/Resolving]

NARRATIVE: CASE EVENT DATE: 20210510
